FAERS Safety Report 5003838-5 (Version None)
Quarter: 2006Q2

REPORT INFORMATION
  Report Type: 
  Country: None (occurrence: None)
  Receive Date: 20060515
  Receipt Date: 20060510
  Transmission Date: 20061013
  Serious: Yes (Life-Threatening)
  Sender: FDA-Public Use
  Company Number: 200610602BYL

PATIENT
  Age: 58 Year
  Sex: Male

DRUGS (1)
  1. CIPROFLOXACIN HCL [Suspect]
     Indication: PNEUMONIA
     Dosage: 300 MG, BID, INTRAVENOUS
     Route: 042
     Dates: start: 20060310, end: 20060319

REACTIONS (2)
  - BLOOD ALBUMIN ABNORMAL [None]
  - NEPHROTIC SYNDROME [None]
